FAERS Safety Report 6569298-8 (Version None)
Quarter: 2009Q4

REPORT INFORMATION
  Report Type: 
  Country: None (occurrence: None)
  Receive Date: 20091229
  Receipt Date: 20091229
  Transmission Date: 20100525
  Serious: No
  Sender: FDA-Public Use
  Company Number: None

PATIENT
  Age: 67 Year
  Sex: Female
  Weight: 45.8133 kg

DRUGS (2)
  1. READI CAT 2 BARIUM SULFATE SUSPENSION 450 ML EZ-EM INC (BRACCO DIAGNOS [Suspect]
     Indication: COMPUTERISED TOMOGRAM
     Dosage: BARIUM SULFATE 450 ML 3 DOSES ORAL 047
     Route: 048
     Dates: start: 20091122
  2. READI CAT 2 BARIUM SULFATE SUSPENSION 450 ML EZ-EM INC (BRACCO DIAGNOS [Suspect]
     Indication: COMPUTERISED TOMOGRAM
     Dosage: BARIUM SULFATE 450 ML 3 DOSES ORAL 047
     Route: 048
     Dates: start: 20091123

REACTIONS (2)
  - ABDOMINAL PAIN UPPER [None]
  - PYREXIA [None]
